FAERS Safety Report 7374787-2 (Version None)
Quarter: 2011Q1

REPORT INFORMATION
  Report Type: 
  Country: None (occurrence: None)
  Receive Date: 20110325
  Receipt Date: 20101109
  Transmission Date: 20110831
  Serious: No
  Sender: FDA-Public Use
  Company Number: US-MYLANLABS-2010S1020717

PATIENT
  Age: 37 Year
  Sex: Female
  Weight: 95.26 kg

DRUGS (3)
  1. DARVOCET [Concomitant]
     Indication: BREAKTHROUGH PAIN
     Dosage: 100MG/600MG
  2. FENTANYL-100 [Suspect]
     Indication: BACK PAIN
     Dosage: CHANGED Q. 48 HOURS.
     Route: 062
     Dates: start: 20090101
  3. FENTANYL-100 [Suspect]
     Indication: ARTHRALGIA
     Dosage: CHANGED Q. 48 HOURS.
     Route: 062
     Dates: start: 20090101

REACTIONS (5)
  - DRUG INEFFECTIVE [None]
  - INCREASED APPETITE [None]
  - BACK PAIN [None]
  - ARTHRALGIA [None]
  - HEADACHE [None]
